FAERS Safety Report 5528536-0 (Version None)
Quarter: 2007Q4

REPORT INFORMATION
  Report Type: 
  Country: None (occurrence: None)
  Receive Date: 20071128
  Receipt Date: 20071119
  Transmission Date: 20080405
  Serious: Yes (Hospitalization)
  Sender: FDA-Public Use
  Company Number: US-GILEAD-2007-0014404

PATIENT
  Sex: Female
  Weight: 72.64 kg

DRUGS (1)
  1. LETAIRIS [Suspect]
     Indication: PULMONARY HYPERTENSION
     Route: 048
     Dates: start: 20071024

REACTIONS (2)
  - DYSPNOEA [None]
  - FULL BLOOD COUNT DECREASED [None]
